FAERS Safety Report 22058508 (Version 3)
Quarter: 2023Q2

REPORT INFORMATION
  Report Type: Spontaneous
  Country: JP (occurrence: JP)
  Receive Date: 20230303
  Receipt Date: 20230412
  Transmission Date: 20230722
  Serious: Yes (Death, Hospitalization)
  Sender: FDA-Public Use
  Company Number: JP-AMGEN-JPNSP2023037076

PATIENT
  Age: 73 Year
  Sex: Female
  Weight: 39 kg

DRUGS (8)
  1. LUMAKRAS [Suspect]
     Active Substance: SOTORASIB
     Indication: Lung neoplasm malignant
     Dosage: 960 MILLIGRAM, QD
     Route: 048
     Dates: start: 20230222, end: 20230227
  2. LUMAKRAS [Suspect]
     Active Substance: SOTORASIB
     Indication: Lung adenocarcinoma
  3. CELECOXIB [Concomitant]
     Active Substance: CELECOXIB
     Dosage: 2 TABLET, BID
  4. CORTRIL [Concomitant]
     Active Substance: HYDROCORTISONE
     Dosage: 2 TABLET, BID
  5. MIROGABALIN BESYLATE [Concomitant]
     Active Substance: MIROGABALIN BESYLATE
     Dosage: 2 TABLET, BID
  6. BROTIZOLAM [Concomitant]
     Active Substance: BROTIZOLAM
     Dosage: UNK UNK, QD
  7. OLMESARTAN [Concomitant]
     Active Substance: OLMESARTAN
     Dosage: UNK UNK, QD
  8. AMLODIPINE [Concomitant]
     Active Substance: AMLODIPINE BESYLATE
     Dosage: UNK UNK, QD

REACTIONS (1)
  - Gastrointestinal disorder [Fatal]

NARRATIVE: CASE EVENT DATE: 20230225
